FAERS Safety Report 6772631-5 (Version None)
Quarter: 2010Q2

REPORT INFORMATION
  Report Type: 
  Country: None (occurrence: None)
  Receive Date: 20100616
  Receipt Date: 20090722
  Transmission Date: 20101027
  Serious: No
  Sender: FDA-Public Use
  Company Number: US-ASTRAZENECA-2009SE05698

PATIENT
  Age: 8 Year
  Sex: Male

DRUGS (1)
  1. PULMICORT [Suspect]
     Indication: PNEUMONIA
     Route: 055

REACTIONS (2)
  - DRUG DOSE OMISSION [None]
  - DYSPNOEA [None]
